FAERS Safety Report 23364077 (Version 3)
Quarter: 2024Q2

REPORT INFORMATION
  Report Type: Spontaneous
  Country: US (occurrence: US)
  Receive Date: 20240104
  Receipt Date: 20240412
  Transmission Date: 20240716
  Serious: No
  Sender: FDA-Public Use
  Company Number: US-AMGEN-USASP2024000833

PATIENT
  Age: 77 Year
  Sex: Male

DRUGS (2)
  1. REPATHA [Suspect]
     Active Substance: EVOLOCUMAB
     Indication: Blood cholesterol increased
     Dosage: 420 MILLIGRAM, Q2WK
     Route: 065
  2. REPATHA [Suspect]
     Active Substance: EVOLOCUMAB
     Indication: Blood triglycerides increased
     Dosage: 420 MILLIGRAM, Q2WK
     Route: 065

REACTIONS (4)
  - Drug dose omission by device [Unknown]
  - Device difficult to use [Unknown]
  - Product preparation error [Unknown]
  - Wrong technique in product usage process [Unknown]

NARRATIVE: CASE EVENT DATE: 20240101
